FAERS Safety Report 8809219 (Version 1)
Quarter: 2012Q4

REPORT INFORMATION
  Report Type: 
  Country: US (occurrence: US)
  Receive Date: 20120926
  Receipt Date: 20120926
  Transmission Date: 20130627
  Serious: Yes (Other)
  Sender: FDA-Public Use
  Company Number: PHEH2012US004866

PATIENT
  Sex: Female

DRUGS (9)
  1. GILENYA [Suspect]
     Indication: MULTIPLE SCLEROSIS
     Dosage: 0.5 mg, QD
     Route: 048
     Dates: start: 20110301
  2. SIMVASTATIN [Concomitant]
  3. LISINOPRIL [Concomitant]
  4. PAXIL [Concomitant]
  5. VITAMIN D [Concomitant]
  6. BAYER [Concomitant]
  7. TYLENOL PM [Concomitant]
  8. VIGAMOX [Concomitant]
  9. LIPITOR [Concomitant]

REACTIONS (2)
  - Condition aggravated [Unknown]
  - Cataract [None]
